FAERS Safety Report 20161029 (Version 3)
Quarter: 2022Q1

REPORT INFORMATION
  Report Type: Spontaneous
  Country: US (occurrence: US)
  Receive Date: 20211208
  Receipt Date: 20220126
  Transmission Date: 20220423
  Serious: Yes (Other)
  Sender: FDA-Public Use
  Company Number: US-NEUROCRINE BIOSCIENCES INC.-2021NBI07069

PATIENT

DRUGS (9)
  1. ONGENTYS [Suspect]
     Active Substance: OPICAPONE
     Indication: Parkinson^s disease
     Dosage: 50 MILLIGRAM, QD
     Route: 048
     Dates: start: 20211126, end: 20211127
  2. CARBIDOPA\LEVODOPA [Concomitant]
     Active Substance: CARBIDOPA\LEVODOPA
     Dosage: UNK
  3. QUETIAPINE [Concomitant]
     Active Substance: QUETIAPINE
     Dosage: UNK
  4. OXYBUTYNIN [Concomitant]
     Active Substance: OXYBUTYNIN
     Dosage: UNK
  5. METOPROLOL [Concomitant]
     Active Substance: METOPROLOL
     Dosage: UNK
  6. MELATONIIN [Concomitant]
     Dosage: UNK
  7. RASAGILINE MESYLATE [Concomitant]
     Active Substance: RASAGILINE MESYLATE
     Dosage: UNK
  8. DOCUSATE [Concomitant]
     Active Substance: DOCUSATE
     Dosage: UNK
  9. SENNA [SENNA ALEXANDRINA LEAF] [Concomitant]
     Dosage: UNK

REACTIONS (6)
  - Hallucination, visual [Recovering/Resolving]
  - Balance disorder [Not Recovered/Not Resolved]
  - Disorientation [Unknown]
  - Dysarthria [Not Recovered/Not Resolved]
  - Fall [Recovered/Resolved]
  - Dizziness [Not Recovered/Not Resolved]
